FAERS Safety Report 19072127 (Version 1)
Quarter: 2021Q1

REPORT INFORMATION
  Report Type: Spontaneous
  Country: US (occurrence: US)
  Receive Date: 20210329
  Receipt Date: 20210329
  Transmission Date: 20210420
  Serious: Yes (Death)
  Sender: FDA-Public Use
  Company Number: None

PATIENT
  Sex: Female
  Weight: 76.5 kg

DRUGS (17)
  1. MIRALAX [Concomitant]
     Active Substance: POLYETHYLENE GLYCOL 3350
  2. UDENYCA [Concomitant]
     Active Substance: PEGFILGRASTIM-CBQV
  3. ZOFRAN [Concomitant]
     Active Substance: ONDANSETRON HYDROCHLORIDE
  4. CAPECITABINE. [Suspect]
     Active Substance: CAPECITABINE
     Indication: PANCREATIC CARCINOMA
     Dates: start: 20210130
  5. OXALIPLATIN. [Concomitant]
     Active Substance: OXALIPLATIN
  6. DECADRON [Concomitant]
     Active Substance: DEXAMETHASONE
  7. LORAZEPAM. [Concomitant]
     Active Substance: LORAZEPAM
  8. PROCHLORPERAZINE. [Concomitant]
     Active Substance: PROCHLORPERAZINE
  9. FLUOROURACIL. [Concomitant]
     Active Substance: FLUOROURACIL
  10. LEVOLEUCOVORIN. [Concomitant]
     Active Substance: LEVOLEUCOVORIN
  11. NEUPOGEN [Concomitant]
     Active Substance: FILGRASTIM
  12. TRAMADOL. [Concomitant]
     Active Substance: TRAMADOL
  13. PROTONIX [Concomitant]
     Active Substance: PANTOPRAZOLE SODIUM
  14. IRINOTECAN [Concomitant]
     Active Substance: IRINOTECAN
  15. LYRICA [Concomitant]
     Active Substance: PREGABALIN
  16. POTASSIUM CHLORIDE. [Concomitant]
     Active Substance: POTASSIUM CHLORIDE
  17. REGLAN [Concomitant]
     Active Substance: METOCLOPRAMIDE HYDROCHLORIDE

REACTIONS (1)
  - Death [None]
